FAERS Safety Report 13092001 (Version 1)
Quarter: 2017Q1

REPORT INFORMATION
  Report Type: Spontaneous
  Country: US (occurrence: US)
  Receive Date: 20170106
  Receipt Date: 20170106
  Transmission Date: 20170428
  Serious: No
  Sender: FDA-Public Use
  Company Number: US-ASTRAZENECA-2016SF37547

PATIENT
  Sex: Male
  Weight: 88.9 kg

DRUGS (3)
  1. BRILINTA [Suspect]
     Active Substance: TICAGRELOR
     Indication: STENT PLACEMENT
     Route: 048
     Dates: start: 20160323
  2. BRILINTA [Suspect]
     Active Substance: TICAGRELOR
     Indication: ANTICOAGULANT THERAPY
     Route: 048
     Dates: start: 20160323
  3. DIGOXIN. [Concomitant]
     Active Substance: DIGOXIN
     Dosage: UNKNOWN
     Route: 065

REACTIONS (9)
  - Weight decreased [Unknown]
  - Atrial fibrillation [Unknown]
  - Body height decreased [Unknown]
  - Blood blister [Unknown]
  - Bleeding time prolonged [Unknown]
  - Haemorrhage [Unknown]
  - Off label use [Unknown]
  - Contusion [Unknown]
  - Haemorrhage subcutaneous [Unknown]
